FAERS Safety Report 25758840 (Version 1)
Quarter: 2025Q3

REPORT INFORMATION
  Report Type: Report from Study
  Country: CA (occurrence: CA)
  Receive Date: 20250904
  Receipt Date: 20250904
  Transmission Date: 20251020
  Serious: Yes (Hospitalization)
  Sender: ABBVIE
  Company Number: CA-ABBVIE-6440874

PATIENT
  Age: 23 Year
  Sex: Female

DRUGS (1)
  1. RINVOQ [Suspect]
     Active Substance: UPADACITINIB
     Indication: Colitis ulcerative
     Dosage: FORM STRENGTH 45 MG
     Route: 048
     Dates: start: 20250714

REACTIONS (4)
  - Abdominal pain [Not Recovered/Not Resolved]
  - Stoma site reaction [Unknown]
  - Back pain [Unknown]
  - Stoma complication [Unknown]

NARRATIVE: CASE EVENT DATE: 20240101
